FAERS Safety Report 8378774-7 (Version None)
Quarter: 2012Q2

REPORT INFORMATION
  Report Type: 
  Country: None (occurrence: None)
  Receive Date: 20120522
  Receipt Date: 20120522
  Transmission Date: 20120825
  Serious: Yes (Other)
  Sender: FDA-Public Use
  Company Number: DE-AMGEN-DEUSP2012024272

PATIENT
  Sex: Female

DRUGS (2)
  1. PROLIA [Suspect]
     Indication: OSTEOPOROSIS POSTMENOPAUSAL
     Dosage: 60 MG, UNK
     Route: 058
     Dates: start: 20110501, end: 20111101
  2. MARCUMAR [Concomitant]

REACTIONS (3)
  - THERAPY REGIMEN CHANGED [None]
  - OEDEMA PERIPHERAL [None]
  - VENOUS THROMBOSIS [None]
